FAERS Safety Report 6657666-5 (Version None)
Quarter: 2010Q1

REPORT INFORMATION
  Report Type: 
  Country: None (occurrence: None)
  Receive Date: 20100326
  Receipt Date: 20100311
  Transmission Date: 20100710
  Serious: Yes (Other)
  Sender: FDA-Public Use
  Company Number: HA10-058-AE

PATIENT

DRUGS (1)
  1. SULFAMETHOXAZOLE AND TRIMETHOPRIM [Suspect]

REACTIONS (15)
  - BLOOD PRESSURE INCREASED [None]
  - COLD SWEAT [None]
  - CONFUSIONAL STATE [None]
  - DIZZINESS [None]
  - FATIGUE [None]
  - HYPERHIDROSIS [None]
  - MENTAL DISORDER [None]
  - MIGRAINE [None]
  - MUSCULOSKELETAL STIFFNESS [None]
  - PHOTOPHOBIA [None]
  - PHOTOPSIA [None]
  - READING DISORDER [None]
  - STRESS [None]
  - VISION BLURRED [None]
  - VISUAL IMPAIRMENT [None]
